FAERS Safety Report 6028189-1 (Version None)
Quarter: 2009Q1

REPORT INFORMATION
  Report Type: 
  Country: None (occurrence: None)
  Receive Date: 20090106
  Receipt Date: 20081231
  Transmission Date: 20090719
  Serious: Yes (Hospitalization)
  Sender: FDA-Public Use
  Company Number: CH-BRISTOL-MYERS SQUIBB COMPANY-14459739

PATIENT
  Age: 60 Year
  Sex: Male

DRUGS (5)
  1. CETUXIMAB [Suspect]
     Indication: PROSTATE CANCER
     Dosage: MOST RECENT INFUSION: 06NOV08 (520MG, 1 IN 1 WEEK).
     Route: 042
     Dates: start: 20081029
  2. TAXOTERE [Suspect]
     Indication: PROSTATE CANCER
     Route: 042
     Dates: start: 20081029
  3. METHYLPREDNISOLONE 16MG TAB [Concomitant]
     Route: 042
     Dates: start: 20081112
  4. SPIRICORT [Concomitant]
     Dosage: 5MG TILL 29OCT08, 10MG FROM 29OCT08 TILL 12NOV08 AND AGAIN AS FROM 25NOV08.
     Route: 048
  5. PREDNISONE TAB [Concomitant]
     Route: 048
     Dates: start: 20081114, end: 20081121

REACTIONS (2)
  - ARRHYTHMIA [None]
  - PYREXIA [None]
